FAERS Safety Report 24291907 (Version 2)
Quarter: 2025Q1

REPORT INFORMATION
  Report Type: Spontaneous
  Country: CA (occurrence: CA)
  Receive Date: 20240906
  Receipt Date: 20250313
  Transmission Date: 20250409
  Serious: Yes (Disabling)
  Sender: ABBVIE
  Company Number: CA-LUNDBECK-DKLU4003788

PATIENT
  Age: 21 Year
  Sex: Male
  Weight: 81.65 kg

DRUGS (4)
  1. CIPRALEX [Suspect]
     Active Substance: ESCITALOPRAM OXALATE
     Indication: Social anxiety disorder
     Dosage: 5 MILLIGRAM
     Route: 048
  2. CIPRALEX [Suspect]
     Active Substance: ESCITALOPRAM OXALATE
     Indication: Social anxiety disorder
     Route: 048
  3. CIPRALEX [Suspect]
     Active Substance: ESCITALOPRAM OXALATE
     Indication: Social anxiety disorder
     Dosage: 10 MILLIGRAM
     Route: 048
  4. SYNTHROID [Concomitant]
     Active Substance: LEVOTHYROXINE SODIUM
     Indication: Product used for unknown indication

REACTIONS (8)
  - Sexual dysfunction [Not Recovered/Not Resolved]
  - Blunted affect [Recovering/Resolving]
  - Male orgasmic disorder [Not Recovered/Not Resolved]
  - Orgasmic sensation decreased [Not Recovered/Not Resolved]
  - Libido decreased [Recovering/Resolving]
  - Paraesthesia [Not Recovered/Not Resolved]
  - Genital hypoaesthesia [Not Recovered/Not Resolved]
  - Erectile dysfunction [Recovered/Resolved]
